FAERS Safety Report 8194176-0 (Version None)
Quarter: 2012Q1

REPORT INFORMATION
  Report Type: 
  Country: None (occurrence: None)
  Receive Date: 20120308
  Receipt Date: 20120227
  Transmission Date: 20120608
  Serious: Yes (Hospitalization, Other)
  Sender: FDA-Public Use
  Company Number: US-ELI_LILLY_AND_COMPANY-US201112004307

PATIENT
  Sex: Female
  Weight: 44 kg

DRUGS (5)
  1. VITAMINS NOS [Concomitant]
  2. FORTEO [Suspect]
     Indication: OSTEOPOROSIS
     Dosage: 20 UG, QD
     Route: 058
     Dates: start: 20111004
  3. SYNTHROID [Concomitant]
     Indication: THYROID DISORDER
  4. FORTEO [Suspect]
     Dosage: 20 UG, QD
     Route: 058
  5. MELOXICAM [Concomitant]
     Indication: ARTHRITIS

REACTIONS (3)
  - UPPER LIMB FRACTURE [None]
  - PELVIC FRACTURE [None]
  - FALL [None]
